FAERS Safety Report 18319159 (Version 1)
Quarter: 2020Q3

REPORT INFORMATION
  Report Type: Spontaneous
  Country: US (occurrence: US)
  Receive Date: 20200928
  Receipt Date: 20200928
  Transmission Date: 20201103
  Serious: Yes (Hospitalization)
  Sender: FDA-Public Use
  Company Number: None

PATIENT
  Sex: Male

DRUGS (6)
  1. METHOTREXATE. [Concomitant]
     Active Substance: METHOTREXATE
  2. NEXIUM [Concomitant]
     Active Substance: ESOMEPRAZOLE MAGNESIUM
  3. FOLIC ACID. [Concomitant]
     Active Substance: FOLIC ACID
  4. HUMIRA [Suspect]
     Active Substance: ADALIMUMAB
     Indication: RHEUMATOID ARTHRITIS
     Dosage: OTHER DOSE:1 PEN;?
     Route: 058
     Dates: start: 20160402
  5. ATORVASTATIN [Concomitant]
     Active Substance: ATORVASTATIN
  6. ZORVOLEX [Concomitant]
     Active Substance: DICLOFENAC

REACTIONS (1)
  - COVID-19 [None]
